FAERS Safety Report 14947383 (Version 1)
Quarter: 2018Q2

REPORT INFORMATION
  Report Type: Spontaneous
  Country: US (occurrence: US)
  Receive Date: 20180529
  Receipt Date: 20180529
  Transmission Date: 20180711
  Serious: Yes (Other)
  Sender: FDA-Public Use
  Company Number: US-WEST-WARD PHARMACEUTICALS CORP.-US-H14001-17-05363

PATIENT
  Sex: Female
  Weight: 70.37 kg

DRUGS (1)
  1. PREDNISONE. [Suspect]
     Active Substance: PREDNISONE
     Indication: ADDISON^S DISEASE
     Route: 048
     Dates: start: 2004

REACTIONS (2)
  - Drug ineffective [Unknown]
  - Pulmonary oedema [Not Recovered/Not Resolved]
